FAERS Safety Report 9986213 (Version 1)
Quarter: 2014Q1

REPORT INFORMATION
  Report Type: Report from Study
  Country: US (occurrence: US)
  Receive Date: 20140307
  Receipt Date: 20140307
  Transmission Date: 20141002
  Serious: No
  Sender: FDA-Public Use
  Company Number: US-ABBVIE-13P-163-1088368-00

PATIENT
  Age: 56 Year
  Sex: Female
  Weight: 70.82 kg

DRUGS (9)
  1. HUMIRA [Suspect]
     Indication: ANKYLOSING SPONDYLITIS
  2. HUMIRA [Suspect]
     Indication: RHEUMATOID ARTHRITIS
  3. LORTAB [Concomitant]
     Indication: PAIN
  4. XANAX [Concomitant]
     Indication: SLEEP DISORDER
  5. LEVOXYL [Concomitant]
     Indication: HYPOTHYROIDISM
  6. PROVERA [Concomitant]
     Indication: HORMONE REPLACEMENT THERAPY
  7. PREDNISONE [Concomitant]
     Indication: ANKYLOSING SPONDYLITIS
  8. ESTRACE [Concomitant]
     Indication: HORMONE REPLACEMENT THERAPY
  9. ARAVA [Concomitant]
     Indication: RHEUMATOID ARTHRITIS

REACTIONS (2)
  - Aphonia [Not Recovered/Not Resolved]
  - Sinusitis [Not Recovered/Not Resolved]
